FAERS Safety Report 14262226 (Version 1)
Quarter: 2017Q4

REPORT INFORMATION
  Report Type: Spontaneous
  Country: US (occurrence: US)
  Receive Date: 20171208
  Receipt Date: 20171208
  Transmission Date: 20180321
  Serious: No
  Sender: FDA-Public Use
  Company Number: US-KYOWAKIRIN-2017BKK000437

PATIENT

DRUGS (4)
  1. PHENERGAN [Concomitant]
     Active Substance: PROMETHAZINE HYDROCHLORIDE
     Indication: NAUSEA
     Dosage: 12.5 MG, BID
     Route: 042
     Dates: start: 2016, end: 2016
  2. PHENERGAN [Concomitant]
     Active Substance: PROMETHAZINE HYDROCHLORIDE
     Indication: VOMITING
     Dosage: 12.5 MG, QID
     Route: 065
  3. ASA [Concomitant]
     Active Substance: ASPIRIN
     Indication: PRODUCT USED FOR UNKNOWN INDICATION
     Dosage: 88 MG, QD
     Route: 065
  4. SANCUSO [Suspect]
     Active Substance: GRANISETRON
     Indication: HYPEREMESIS GRAVIDARUM
     Dosage: 1 DF, 1X/WEEK
     Route: 062
     Dates: start: 20161213, end: 20170412

REACTIONS (12)
  - Skin irritation [Unknown]
  - Nausea [Unknown]
  - Product use in unapproved indication [Recovered/Resolved]
  - Maternal exposure during pregnancy [None]
  - Product outer packaging issue [None]
  - Congenital anomaly in offspring [None]
  - Pruritus [Unknown]
  - Diarrhoea [Unknown]
  - Product adhesion issue [Recovered/Resolved]
  - Rash papular [Unknown]
  - Vomiting [Unknown]
  - Erythema [Unknown]

NARRATIVE: CASE EVENT DATE: 20161213
